FAERS Safety Report 9849392 (Version 1)
Quarter: 2014Q1

REPORT INFORMATION
  Report Type: Spontaneous
  Country: US (occurrence: US)
  Receive Date: 20140128
  Receipt Date: 20140128
  Transmission Date: 20141002
  Serious: Yes (Hospitalization)
  Sender: FDA-Public Use
  Company Number: US-JNJFOC-20140112110

PATIENT
  Age: 8 Decade
  Sex: Female

DRUGS (1)
  1. CONCERTA [Suspect]
     Indication: ATTENTION DEFICIT/HYPERACTIVITY DISORDER
     Route: 048

REACTIONS (4)
  - Neoplasm malignant [Not Recovered/Not Resolved]
  - Medication residue present [Recovered/Resolved]
  - Treatment noncompliance [Unknown]
  - Off label use [Unknown]
